FAERS Safety Report 9479287 (Version 1)
Quarter: 2013Q3

REPORT INFORMATION
  Report Type: Report from Study
  Country: CA (occurrence: CA)
  Receive Date: 20130827
  Receipt Date: 20130827
  Transmission Date: 20140515
  Serious: Yes (Other)
  Sender: FDA-Public Use
  Company Number: CA-ABBOTT-13P-028-1136914-00

PATIENT
  Sex: Male
  Weight: 74.91 kg

DRUGS (2)
  1. KALETRA 200/50 [Suspect]
     Indication: HIV INFECTION
     Dosage: 200MG/50MG, 2 TABS BID (TOTAL DAILY 800/200 MG)
     Route: 048
     Dates: start: 200801
  2. KIVEXA [Concomitant]
     Indication: HIV INFECTION
     Dosage: 600/300 MG
     Route: 048

REACTIONS (3)
  - Skin cancer [Recovered/Resolved]
  - Testis cancer [Recovered/Resolved]
  - Skin papilloma [Not Recovered/Not Resolved]
